FAERS Safety Report 23148216 (Version 3)
Quarter: 2024Q1

REPORT INFORMATION
  Report Type: Report from Study
  Country: CA (occurrence: CA)
  Receive Date: 20231106
  Receipt Date: 20240228
  Transmission Date: 20240410
  Serious: Yes (Hospitalization)
  Sender: FDA-Public Use
  Company Number: CA-MYLANLABS-2023M1055588

PATIENT

DRUGS (7)
  1. HULIO [Suspect]
     Active Substance: ADALIMUMAB-FKJP
     Indication: Crohn^s disease
     Dosage: 80 MILLIGRAM, BIWEEKLY
     Route: 065
     Dates: start: 20211023
  2. HULIO [Suspect]
     Active Substance: ADALIMUMAB-FKJP
     Dosage: 40 MILLIGRAM, QW
     Route: 065
  3. HULIO [Suspect]
     Active Substance: ADALIMUMAB-FKJP
     Dosage: 40 MILLIGRAM, BIWEEKLY
     Route: 058
  4. HULIO [Suspect]
     Active Substance: ADALIMUMAB-FKJP
     Dosage: UNK
     Route: 058
     Dates: start: 20231026
  5. HULIO [Suspect]
     Active Substance: ADALIMUMAB-FKJP
     Dosage: 160 MG, QW (REINTRODUCTION AT WEEK 0)
     Route: 065
  6. HULIO [Suspect]
     Active Substance: ADALIMUMAB-FKJP
     Dosage: 80 MG, QW (WEEK 2)
     Route: 065
  7. HULIO [Suspect]
     Active Substance: ADALIMUMAB-FKJP
     Dosage: 40 MG, QW (WEEK 3)
     Route: 065

REACTIONS (7)
  - Immune system disorder [Unknown]
  - Injection site pruritus [Recovered/Resolved]
  - Injection site swelling [Recovered/Resolved]
  - Injection site urticaria [Recovered/Resolved]
  - Illness [Unknown]
  - Urticaria [Unknown]
  - Off label use [Unknown]
